FAERS Safety Report 9427511 (Version 1)
Quarter: 2013Q3

REPORT INFORMATION
  Report Type: Spontaneous
  Country: US (occurrence: US)
  Receive Date: 20130730
  Receipt Date: 20130730
  Transmission Date: 20140515
  Serious: Yes (Other)
  Sender: FDA-Public Use
  Company Number: US-ABBOTT-12P-163-0966722-00

PATIENT
  Age: 54 Year
  Sex: Female
  Weight: 77.18 kg

DRUGS (6)
  1. NIASPAN (COATED) 500MG [Suspect]
     Indication: BLOOD CHOLESTEROL INCREASED
     Dosage: 500 MG QHS
     Dates: start: 201202
  2. NIASPAN (COATED) 500MG [Suspect]
     Indication: BLOOD TRIGLYCERIDES INCREASED
  3. LIPITOR [Concomitant]
     Indication: BLOOD CHOLESTEROL INCREASED
  4. FISH OIL [Concomitant]
     Indication: PRODUCT USED FOR UNKNOWN INDICATION
  5. GLUCOPHAGE [Concomitant]
     Indication: DIABETES MELLITUS
  6. DETRAOL LA [Concomitant]
     Indication: URINARY INCONTINENCE

REACTIONS (7)
  - Hypersensitivity [Not Recovered/Not Resolved]
  - Feeling hot [Not Recovered/Not Resolved]
  - Oral discomfort [Not Recovered/Not Resolved]
  - Paraesthesia oral [Not Recovered/Not Resolved]
  - Rash [Not Recovered/Not Resolved]
  - Lip swelling [Not Recovered/Not Resolved]
  - Dyspnoea [Recovered/Resolved]
